FAERS Safety Report 11700597 (Version 1)
Quarter: 2015Q4

REPORT INFORMATION
  Report Type: Spontaneous
  Country: US (occurrence: US)
  Receive Date: 20151105
  Receipt Date: 20151105
  Transmission Date: 20160304
  Serious: No
  Sender: FDA-Public Use
  Company Number: US-TORRENT-00000988

PATIENT
  Age: 58 Year
  Sex: Female

DRUGS (2)
  1. LEXAPRO [Concomitant]
     Active Substance: ESCITALOPRAM OXALATE
  2. ARIPIPRAZOLE TABLETS [Suspect]
     Active Substance: ARIPIPRAZOLE
     Indication: PRODUCT USED FOR UNKNOWN INDICATION
     Dosage: ONCE DAILY

REACTIONS (5)
  - Drug ineffective [Unknown]
  - Abdominal distension [Unknown]
  - Abdominal pain upper [Unknown]
  - Constipation [Unknown]
  - Nausea [Unknown]
